FAERS Safety Report 7280250-X (Version None)
Quarter: 2011Q1

REPORT INFORMATION
  Report Type: 
  Country: None (occurrence: None)
  Receive Date: 20110208
  Receipt Date: 20110204
  Transmission Date: 20110831
  Serious: Yes (Death)
  Sender: FDA-Public Use
  Company Number: RS-GENZYME-FLUD-1000693

PATIENT
  Age: 50 Year
  Sex: Female

DRUGS (18)
  1. VINCRISTINE [Suspect]
     Indication: LARGE GRANULAR LYMPHOCYTOSIS
     Dosage: UNK
     Route: 065
  2. CAMPATH [Suspect]
     Indication: LARGE GRANULAR LYMPHOCYTOSIS
     Dosage: UNK
     Route: 065
  3. VINCRISTINE [Suspect]
     Dosage: UNK
     Route: 065
  4. CYCLOPHOSPHAMIDE [Suspect]
     Dosage: UNK
     Route: 065
  5. CYCLOPHOSPHAMIDE [Suspect]
     Dosage: UNK
     Route: 065
  6. DOXORUBICIN [Suspect]
     Dosage: UNK
     Route: 065
  7. CISPLATIN [Suspect]
     Indication: LARGE GRANULAR LYMPHOCYTOSIS
     Dosage: UNK
     Route: 065
  8. CYCLOPHOSPHAMIDE [Suspect]
     Indication: LARGE GRANULAR LYMPHOCYTOSIS
     Dosage: UNK
     Route: 065
  9. VINCRISTINE [Suspect]
     Dosage: UNK
     Route: 065
  10. PREDNISONE [Suspect]
     Dosage: UNK
     Route: 065
  11. DEXAMETHASONE [Suspect]
     Indication: LARGE GRANULAR LYMPHOCYTOSIS
     Dosage: UNK
     Route: 065
  12. CYTARABINE [Suspect]
     Indication: LARGE GRANULAR LYMPHOCYTOSIS
     Dosage: UNK
     Route: 065
  13. DOXORUBICIN [Suspect]
     Indication: LARGE GRANULAR LYMPHOCYTOSIS
     Dosage: UNK
     Route: 065
  14. DOXORUBICIN [Suspect]
     Dosage: UNK
     Route: 065
  15. FLUDARA [Suspect]
     Indication: LARGE GRANULAR LYMPHOCYTOSIS
     Dosage: UNK
     Route: 065
  16. PREDNISONE [Suspect]
     Indication: LARGE GRANULAR LYMPHOCYTOSIS
     Dosage: UNK
     Route: 065
  17. CYCLOPHOSPHAMIDE [Suspect]
     Dosage: UNK
     Route: 065
  18. PREDNISONE [Suspect]
     Dosage: UNK
     Route: 065

REACTIONS (1)
  - DISEASE PROGRESSION [None]
